FAERS Safety Report 12081481 (Version 1)
Quarter: 2016Q1

REPORT INFORMATION
  Report Type: Spontaneous
  Country: US (occurrence: US)
  Receive Date: 20160216
  Receipt Date: 20160216
  Transmission Date: 20160526
  Serious: Yes (Other)
  Sender: FDA-Public Use
  Company Number: US-SA-2016SA024499

PATIENT
  Age: 47 Year
  Sex: Male

DRUGS (12)
  1. IFOSFAMIDE. [Suspect]
     Active Substance: IFOSFAMIDE
     Indication: UNDIFFERENTIATED SARCOMA
     Dosage: DAYS (1-5) DOSE:2.5 GRAM(S)/SQUARE METER
     Route: 065
  2. DOXORUBICIN [Suspect]
     Active Substance: DOXORUBICIN
     Indication: UNDIFFERENTIATED SARCOMA
     Dosage: 1-3 DAYS
     Route: 042
  3. DOXORUBICIN [Suspect]
     Active Substance: DOXORUBICIN
     Indication: HEPATIC NEOPLASM
     Dosage: 1-3 DAYS
     Route: 042
  4. IFOSFAMIDE. [Suspect]
     Active Substance: IFOSFAMIDE
     Indication: UNDIFFERENTIATED SARCOMA
     Dosage: DAYS (1-5) DOSE:2.5 GRAM(S)/SQUARE METER
     Route: 065
  5. DOXORUBICIN [Suspect]
     Active Substance: DOXORUBICIN
     Indication: UNDIFFERENTIATED SARCOMA
     Dosage: 1-3 DAYS
     Route: 042
  6. GEMCITABINE [Concomitant]
     Active Substance: GEMCITABINE\GEMCITABINE HYDROCHLORIDE
     Indication: UNDIFFERENTIATED SARCOMA
     Dosage: ON DAY 1 TO 8
     Route: 042
  7. DOCETAXEL. [Suspect]
     Active Substance: DOCETAXEL
     Indication: UNDIFFERENTIATED SARCOMA
     Dosage: ON DAY 8
     Route: 042
  8. DOXORUBICIN [Suspect]
     Active Substance: DOXORUBICIN
     Indication: HEPATIC NEOPLASM
     Dosage: 1-3 DAYS
     Route: 042
  9. IFOSFAMIDE. [Suspect]
     Active Substance: IFOSFAMIDE
     Indication: HEPATIC NEOPLASM
     Dosage: DAYS (1-5) DOSE:2.5 GRAM(S)/SQUARE METER
     Route: 065
  10. DOCETAXEL. [Suspect]
     Active Substance: DOCETAXEL
     Indication: HEPATIC NEOPLASM
     Dosage: ON DAY 8
     Route: 042
  11. IFOSFAMIDE. [Suspect]
     Active Substance: IFOSFAMIDE
     Indication: HEPATIC NEOPLASM
     Dosage: DAYS (1-5) DOSE:2.5 GRAM(S)/SQUARE METER
     Route: 065
  12. GEMCITABINE [Concomitant]
     Active Substance: GEMCITABINE\GEMCITABINE HYDROCHLORIDE
     Indication: HEPATIC NEOPLASM
     Dosage: ON DAY 1 TO 8
     Route: 042

REACTIONS (4)
  - Undifferentiated sarcoma [Recovered/Resolved]
  - Hepatic neoplasm [Recovered/Resolved]
  - Disease progression [Recovered/Resolved]
  - Product use issue [Unknown]
